FAERS Safety Report 5239703-8 (Version None)
Quarter: 2007Q1

REPORT INFORMATION
  Report Type: 
  Country: None (occurrence: None)
  Receive Date: 20070216
  Receipt Date: 20070206
  Transmission Date: 20070707
  Serious: Yes (Other)
  Sender: FDA-Public Use
  Company Number: BR-ROCHE-481771

PATIENT
  Age: 37 Year
  Sex: Female
  Weight: 54 kg

DRUGS (3)
  1. ISOTRETINOIN [Suspect]
     Indication: ACNE
     Route: 048
     Dates: start: 20070124
  2. FLUOXETINE [Concomitant]
     Indication: BIPOLAR DISORDER
     Route: 048
     Dates: start: 20050615
  3. RIVOTRIL [Concomitant]
     Indication: BIPOLAR DISORDER
     Route: 048
     Dates: start: 20050615

REACTIONS (3)
  - HALLUCINATION, VISUAL [None]
  - MEMORY IMPAIRMENT [None]
  - SPEECH DISORDER [None]
